FAERS Safety Report 11103415 (Version 1)
Quarter: 2015Q2

REPORT INFORMATION
  Report Type: Spontaneous
  Country: CA (occurrence: CA)
  Receive Date: 20150511
  Receipt Date: 20150511
  Transmission Date: 20150821
  Serious: Yes (Other)
  Sender: FDA-Public Use
  Company Number: CA-ACTAVIS-2015-09060

PATIENT
  Age: 19 Year
  Sex: Male

DRUGS (1)
  1. FLUVOXAMINE MALEATE (UNKNOWN) [Suspect]
     Active Substance: FLUVOXAMINE MALEATE
     Indication: ANXIETY
     Dosage: 150 MG, DAILY
     Route: 065

REACTIONS (1)
  - Cataract [Recovered/Resolved]
